FAERS Safety Report 8176291-0 (Version None)
Quarter: 2012Q1

REPORT INFORMATION
  Report Type: 
  Country: None (occurrence: None)
  Receive Date: 20120301
  Receipt Date: 20120222
  Transmission Date: 20120608
  Serious: Yes (Other)
  Sender: FDA-Public Use
  Company Number: US-COVIDIEN/TYCO HEALTHCARE/MALLINCKRODT-T201200724

PATIENT
  Age: 2 Year
  Sex: Male

DRUGS (2)
  1. FENTANYL CITRATE [Suspect]
     Indication: SEDATION
     Dosage: UNK
  2. LORAZEPAM [Suspect]
     Indication: SEDATION

REACTIONS (1)
  - DELIRIUM [None]
